FAERS Safety Report 8829665 (Version 1)
Quarter: 2012Q4

REPORT INFORMATION
  Report Type: Report from Study
  Country: FR (occurrence: FR)
  Receive Date: 20121008
  Receipt Date: 20121008
  Transmission Date: 20130627
  Serious: Yes (Other)
  Sender: FDA-Public Use
  Company Number: FR-ROCHE-1142765

PATIENT
  Age: 88 Year
  Sex: Male
  Weight: 74 kg

DRUGS (3)
  1. TENECTEPLASE [Suspect]
     Indication: ACUTE MYOCARDIAL INFARCTION
     Route: 065
  2. CLOPIDOGREL [Concomitant]
  3. ENOXAPARIN [Concomitant]

REACTIONS (1)
  - Renal failure [Recovered/Resolved with Sequelae]
